FAERS Safety Report 13822074 (Version 4)
Quarter: 2017Q4

REPORT INFORMATION
  Report Type: Spontaneous
  Country: US (occurrence: US)
  Receive Date: 20170801
  Receipt Date: 20171102
  Transmission Date: 20180320
  Serious: Yes (Death, Hospitalization, Other)
  Sender: FDA-Public Use
  Company Number: US-PFIZER INC-2017332126

PATIENT
  Age: 91 Year
  Sex: Female

DRUGS (2)
  1. FASLODEX [Concomitant]
     Active Substance: FULVESTRANT
     Dosage: UNK
     Dates: start: 2015, end: 201707
  2. IBRANCE [Suspect]
     Active Substance: PALBOCICLIB
     Indication: BREAST CANCER STAGE IV
     Dosage: UNK, CYCLIC (3 WEEKS ON 1 WEEK OFF)
     Dates: start: 2015, end: 201707

REACTIONS (2)
  - Pneumonia [Unknown]
  - Nephropathy [Fatal]

NARRATIVE: CASE EVENT DATE: 201707
